FAERS Safety Report 7928968-7 (Version None)
Quarter: 2011Q4

REPORT INFORMATION
  Report Type: 
  Country: None (occurrence: None)
  Receive Date: 20111118
  Receipt Date: 20111114
  Transmission Date: 20120403
  Serious: Yes (Hospitalization)
  Sender: FDA-Public Use
  Company Number: JP-MERCK-1111USA00293

PATIENT
  Age: 88 Year
  Sex: Female

DRUGS (2)
  1. TORSEMIDE [Concomitant]
     Indication: CARDIAC FAILURE
     Route: 048
  2. JANUVIA [Suspect]
     Indication: DIABETES MELLITUS
     Route: 048
     Dates: start: 20110101, end: 20111024

REACTIONS (4)
  - PANCREATITIS [None]
  - HEPATIC FUNCTION ABNORMAL [None]
  - BLOOD GLUCOSE INCREASED [None]
  - RENAL IMPAIRMENT [None]
